FAERS Safety Report 9063808 (Version 1)
Quarter: 2013Q1

REPORT INFORMATION
  Report Type: Spontaneous
  Country: US (occurrence: US)
  Receive Date: 20130213
  Receipt Date: 20130213
  Transmission Date: 20140127
  Serious: Yes (Other)
  Sender: FDA-Public Use
  Company Number: US-PFIZER INC-2013012962

PATIENT
  Sex: Male

DRUGS (2)
  1. CELEBREX [Suspect]
     Indication: OSTEOARTHRITIS
     Dosage: UNK
  2. CELEBREX [Suspect]
     Indication: PAIN

REACTIONS (4)
  - Cerebrovascular accident [Recovered/Resolved]
  - Upper limb fracture [Unknown]
  - Fall [Unknown]
  - Drug ineffective [Unknown]
